FAERS Safety Report 10544359 (Version 4)
Quarter: 2015Q1

REPORT INFORMATION
  Report Type: Spontaneous
  Country: US (occurrence: None)
  Receive Date: 20141020
  Receipt Date: 20150120
  Transmission Date: 20150720
  Serious: Yes (Other)
  Sender: FDA-Public Use
  Company Number: AEGR000558

PATIENT
  Age: 37 Year
  Sex: Male
  Weight: 113.4 kg

DRUGS (3)
  1. TRICOR [Concomitant]
     Active Substance: FENOFIBRATE
  2. FLUOXETINE [Concomitant]
     Active Substance: FLUOXETINE\FLUOXETINE HYDROCHLORIDE
  3. JUXTAPID [Suspect]
     Active Substance: LOMITAPIDE MESYLATE
     Indication: PRODUCT USED FOR UNKNOWN INDICATION
     Route: 048
     Dates: start: 201404, end: 201406

REACTIONS (2)
  - Liver function test abnormal [None]
  - Product used for unknown indication [None]

NARRATIVE: CASE EVENT DATE: 201404
